FAERS Safety Report 7638178-9 (Version None)
Quarter: 2011Q3

REPORT INFORMATION
  Report Type: 
  Country: None (occurrence: None)
  Receive Date: 20110727
  Receipt Date: 20110719
  Transmission Date: 20111222
  Serious: Yes (Death, Hospitalization, Other)
  Sender: FDA-Public Use
  Company Number: JP-JNJFOC-20110709362

PATIENT
  Age: 47 Year
  Sex: Male

DRUGS (9)
  1. RISPERDAL [Suspect]
     Indication: SCHIZOPHRENIA
     Route: 048
  2. RISPERDAL [Suspect]
     Dosage: TWO DOSES OF 1ML
     Route: 048
     Dates: start: 20110707
  3. INVEGA [Suspect]
     Route: 048
     Dates: start: 20110414
  4. RISPERDAL [Suspect]
     Route: 048
     Dates: end: 20110413
  5. DESYREL [Concomitant]
     Route: 048
  6. ROHYPNOL [Concomitant]
     Route: 048
  7. INVEGA [Suspect]
     Indication: SCHIZOPHRENIA
     Route: 048
  8. RISPERDAL [Suspect]
     Route: 048
     Dates: start: 20110414
  9. ARTANE [Concomitant]
     Route: 048

REACTIONS (5)
  - LOSS OF CONSCIOUSNESS [None]
  - SCHIZOPHRENIA [None]
  - RESTLESSNESS [None]
  - CARDIAC ARREST [None]
  - INFLUENZA [None]
